FAERS Safety Report 4822467-7 (Version None)
Quarter: 2005Q4

REPORT INFORMATION
  Report Type: 
  Country: None (occurrence: None)
  Receive Date: 20051108
  Receipt Date: 20051027
  Transmission Date: 20060501
  Serious: Yes (Hospitalization, Other)
  Sender: FDA-Public Use
  Company Number: FR-BRISTOL-MYERS SQUIBB COMPANY-13161047

PATIENT
  Age: 75 Year
  Sex: Male

DRUGS (10)
  1. ELISOR TABS 20 MG [Suspect]
     Indication: HYPERCHOLESTEROLAEMIA
     Route: 048
     Dates: start: 20000101, end: 20051001
  2. PREVISCAN [Concomitant]
  3. SOLUDACTONE [Concomitant]
     Indication: CARDIAC FAILURE
  4. DILTIAZEM HCL [Concomitant]
     Indication: HYPERTENSION
  5. ASPEGIC 325 [Concomitant]
  6. TEMESTA [Concomitant]
  7. CORDARONE [Concomitant]
     Indication: ATRIAL FIBRILLATION
  8. DIGOXIN [Concomitant]
     Indication: CARDIAC FAILURE
  9. SERETIDE [Concomitant]
     Indication: BRONCHITIS CHRONIC
  10. THEOPHYLLINE [Concomitant]
     Indication: BRONCHITIS CHRONIC

REACTIONS (4)
  - AMYOTROPHY [None]
  - INTERVERTEBRAL DISC PROTRUSION [None]
  - MYALGIA [None]
  - SCIATICA [None]
